FAERS Safety Report 24294381 (Version 1)
Quarter: 2024Q3

REPORT INFORMATION
  Report Type: Spontaneous
  Country: US (occurrence: None)
  Receive Date: 20240906
  Receipt Date: 20240906
  Transmission Date: 20241017
  Serious: No
  Sender: Public
  Company Number: None

PATIENT
  Age: 16 Year
  Sex: Male
  Weight: 78.47 kg

DRUGS (1)
  1. LEVOTHYROXINE [Suspect]
     Active Substance: LEVOTHYROXINE\LEVOTHYROXINE SODIUM
     Indication: Hypothyroidism
     Dosage: DAILY ORAL
     Route: 048
     Dates: start: 20240703, end: 20240901

REACTIONS (2)
  - Pruritus [None]
  - Pruritus [None]

NARRATIVE: CASE EVENT DATE: 20240705
